FAERS Safety Report 12597836 (Version 3)
Quarter: 2016Q3

REPORT INFORMATION
  Report Type: Spontaneous
  Country: US (occurrence: US)
  Receive Date: 20160727
  Receipt Date: 20160809
  Transmission Date: 20161109
  Serious: Yes (Other)
  Sender: FDA-Public Use
  Company Number: US-PFIZER INC-2016356598

PATIENT
  Sex: Female

DRUGS (3)
  1. MELOXICAM. [Suspect]
     Active Substance: MELOXICAM
     Dosage: UNK
     Dates: start: 1978
  2. METHOTREXATE SODIUM. [Suspect]
     Active Substance: METHOTREXATE SODIUM
     Dosage: UNK
  3. CELEBREX [Suspect]
     Active Substance: CELECOXIB
     Dosage: UNK
     Dates: start: 1978

REACTIONS (4)
  - Gallbladder pain [Unknown]
  - Irritable bowel syndrome [Unknown]
  - Pneumonia [Unknown]
  - Gastrointestinal pain [Unknown]

NARRATIVE: CASE EVENT DATE: 1978
